FAERS Safety Report 26119477 (Version 1)
Quarter: 2025Q4

REPORT INFORMATION
  Report Type: Spontaneous
  Country: AU (occurrence: AU)
  Receive Date: 20251204
  Receipt Date: 20251204
  Transmission Date: 20260118
  Serious: Yes (Other)
  Sender: ROCHE
  Company Number: AU-ROCHE-10000448227

PATIENT
  Age: 55 Year
  Sex: Male

DRUGS (10)
  1. RITUXIMAB [Suspect]
     Active Substance: RITUXIMAB
     Indication: Mantle cell lymphoma refractory
     Route: 065
  2. VENETOCLAX [Suspect]
     Active Substance: VENETOCLAX
     Indication: Mantle cell lymphoma refractory
     Route: 065
  3. LENALIDOMIDE [Suspect]
     Active Substance: LENALIDOMIDE
     Indication: Mantle cell lymphoma refractory
     Route: 065
  4. METHOTREXATE [Concomitant]
     Active Substance: METHOTREXATE
     Dates: start: 202508
  5. IFOSFAMIDE [Concomitant]
     Active Substance: IFOSFAMIDE
     Dates: start: 202508
  6. IFOSFAMIDE [Concomitant]
     Active Substance: IFOSFAMIDE
     Dates: start: 202502
  7. CARBOPLATIN [Concomitant]
     Active Substance: CARBOPLATIN
     Dates: start: 202502
  8. ETOPOSIDE [Concomitant]
     Active Substance: ETOPOSIDE
     Dates: start: 202502
  9. GEMCITABINE [Concomitant]
     Active Substance: GEMCITABINE
     Dates: start: 202502
  10. ZANUBRUTINIB [Concomitant]
     Active Substance: ZANUBRUTINIB
     Dates: start: 202410

REACTIONS (1)
  - Disease progression [Unknown]
